FAERS Safety Report 9163071 (Version 1)
Quarter: 2013Q1

REPORT INFORMATION
  Report Type: Spontaneous
  Country: US (occurrence: US)
  Receive Date: 20130314
  Receipt Date: 20130314
  Transmission Date: 20140127
  Serious: No
  Sender: FDA-Public Use
  Company Number: US-TEVA-391368USA

PATIENT
  Sex: Female
  Weight: 90.8 kg

DRUGS (2)
  1. PROAIR HFA [Suspect]
     Route: 055
  2. QVAR [Suspect]
     Indication: CHRONIC OBSTRUCTIVE PULMONARY DISEASE

REACTIONS (1)
  - Bronchitis [Not Recovered/Not Resolved]
